FAERS Safety Report 8845499 (Version 1)
Quarter: 2012Q4

REPORT INFORMATION
  Report Type: 
  Country: US (occurrence: US)
  Receive Date: 20121017
  Receipt Date: 20121017
  Transmission Date: 20130627
  Serious: No
  Sender: FDA-Public Use
  Company Number: US-PFIZER INC-2012254639

PATIENT
  Sex: Female
  Weight: 54.42 kg

DRUGS (4)
  1. NEURONTIN [Suspect]
     Indication: FIBROMYALGIA
     Dosage: 200 mg, daily
  2. ADVAIR [Concomitant]
     Indication: ASTHMA
     Dosage: 500/50 mcg, daily
  3. SINGULAIR [Concomitant]
     Indication: ASTHMA
     Dosage: 10 mg, daily
  4. LORATADINE [Concomitant]
     Dosage: 10 mg, 1x/day

REACTIONS (5)
  - Incorrect dose administered [Unknown]
  - Dizziness [Unknown]
  - Feeling abnormal [Unknown]
  - Amnesia [Unknown]
  - Thinking abnormal [Unknown]
